FAERS Safety Report 4681452-9 (Version None)
Quarter: 2005Q2

REPORT INFORMATION
  Report Type: 
  Country: None (occurrence: None)
  Receive Date: 20050601
  Receipt Date: 20050516
  Transmission Date: 20051028
  Serious: Yes (Other)
  Sender: FDA-Public Use
  Company Number: US_0502113310

PATIENT
  Age: 77 Year
  Sex: Female
  Weight: 35 kg

DRUGS (1)
  1. FORTEO [Suspect]
     Indication: OSTEOPOROSIS
     Dosage: 20 UG/1 DAY
     Dates: start: 20040701, end: 20050301

REACTIONS (7)
  - ASTHENIA [None]
  - BONE PAIN [None]
  - CONDITION AGGRAVATED [None]
  - PAIN [None]
  - PHARMACEUTICAL PRODUCT COMPLAINT [None]
  - SKIN DISCOLOURATION [None]
  - WEIGHT DECREASED [None]
